FAERS Safety Report 6724814-8 (Version None)
Quarter: 2010Q2

REPORT INFORMATION
  Report Type: 
  Country: None (occurrence: None)
  Receive Date: 20100513
  Receipt Date: 20100513
  Transmission Date: 20101027
  Serious: Yes (Life-Threatening, Hospitalization, Disabling)
  Sender: FDA-Public Use
  Company Number: None

PATIENT
  Age: 57 Year
  Sex: Female
  Weight: 72.5755 kg

DRUGS (1)
  1. FOSAMAX [Suspect]
     Indication: OSTEOPENIA
     Dosage: WEEKLY, APPROX. 10 YEARS

REACTIONS (5)
  - BACK DISORDER [None]
  - FALL [None]
  - FAT EMBOLISM [None]
  - FEMUR FRACTURE [None]
  - OXYGEN SATURATION DECREASED [None]
